FAERS Safety Report 9397345 (Version 1)
Quarter: 2013Q3

REPORT INFORMATION
  Report Type: Spontaneous
  Country: US (occurrence: None)
  Receive Date: 20130711
  Receipt Date: 20130711
  Transmission Date: 20140515
  Serious: Yes (Death, Hospitalization)
  Sender: FDA-Public Use
  Company Number: None

PATIENT
  Age: 66 Year
  Sex: Female
  Weight: 85 kg

DRUGS (2)
  1. CISPLATIN [Suspect]
     Dates: end: 20130521
  2. VINORELBINE TARTRATE [Suspect]
     Dates: end: 20130521

REACTIONS (3)
  - Neutropenic sepsis [None]
  - Enterocolitis [None]
  - Continuous haemodiafiltration [None]
